FAERS Safety Report 11079966 (Version 2)
Quarter: 2015Q2

REPORT INFORMATION
  Report Type: Spontaneous
  Country: DE (occurrence: DE)
  Receive Date: 20150430
  Receipt Date: 20150506
  Transmission Date: 20150821
  Serious: Yes (Other)
  Sender: FDA-Public Use
  Company Number: DE-TEVA-544223GER

PATIENT
  Age: 69 Year
  Sex: Female

DRUGS (4)
  1. OXALIPLATIN. [Suspect]
     Active Substance: OXALIPLATIN
     Indication: ADENOCARCINOMA PANCREAS
     Dosage: 72 CYCLES
     Route: 065
     Dates: start: 201102, end: 201404
  2. IRINOTECAN [Suspect]
     Active Substance: IRINOTECAN
     Indication: ADENOCARCINOMA PANCREAS
     Dosage: 72 CYCLES
     Route: 065
     Dates: start: 201102, end: 201404
  3. FOLINIC ACID [Suspect]
     Active Substance: LEUCOVORIN
     Indication: ADENOCARCINOMA PANCREAS
     Dosage: 72 CYCLES
     Route: 065
     Dates: start: 201102, end: 201404
  4. FLUOROURACIL. [Suspect]
     Active Substance: FLUOROURACIL
     Indication: ADENOCARCINOMA PANCREAS
     Dosage: 72 CYCLES
     Route: 065
     Dates: start: 201102, end: 201404

REACTIONS (4)
  - Neutropenia [Unknown]
  - Polyneuropathy [Unknown]
  - Mucosal inflammation [Unknown]
  - Thrombocytopenia [Unknown]
